FAERS Safety Report 9492813 (Version 1)
Quarter: 2013Q3

REPORT INFORMATION
  Report Type: Spontaneous
  Country: US (occurrence: US)
  Receive Date: 20130830
  Receipt Date: 20130830
  Transmission Date: 20140515
  Serious: Yes (Other)
  Sender: FDA-Public Use
  Company Number: US-PFIZER INC-2013251234

PATIENT
  Age: 63 Year
  Sex: Female
  Weight: 72.58 kg

DRUGS (3)
  1. IBUPROFEN [Suspect]
     Route: 065
  2. LEVAQUIN [Suspect]
     Indication: SINUSITIS
     Route: 042
     Dates: start: 200810, end: 200810
  3. LEVAQUIN [Suspect]
     Route: 048
     Dates: start: 200810

REACTIONS (18)
  - Suicidal ideation [Unknown]
  - Neuropathy peripheral [Not Recovered/Not Resolved]
  - Ventricular extrasystoles [Unknown]
  - Toxicity to various agents [Not Recovered/Not Resolved]
  - Supraventricular tachycardia [Unknown]
  - Cardiac disorder [Unknown]
  - Connective tissue disorder [Unknown]
  - Myofascial pain syndrome [Not Recovered/Not Resolved]
  - Muscle disorder [Not Recovered/Not Resolved]
  - Hypothyroidism [Not Recovered/Not Resolved]
  - Feeling abnormal [Not Recovered/Not Resolved]
  - Pain [Recovered/Resolved]
  - Swelling [Unknown]
  - Local swelling [Unknown]
  - Vitamin D deficiency [Not Recovered/Not Resolved]
  - Vitamin B12 deficiency [Not Recovered/Not Resolved]
  - Urticaria [Not Recovered/Not Resolved]
  - Multiple allergies [Not Recovered/Not Resolved]
